FAERS Safety Report 14346917 (Version 2)
Quarter: 2018Q1

REPORT INFORMATION
  Report Type: Spontaneous
  Country: FR (occurrence: FR)
  Receive Date: 20180103
  Receipt Date: 20180208
  Transmission Date: 20180509
  Serious: Yes (Life-Threatening, Other)
  Sender: FDA-Public Use
  Company Number: FR-PFIZER INC-2017550869

PATIENT
  Age: 69 Year
  Sex: Male
  Weight: 72 kg

DRUGS (7)
  1. CEFUROXIME. [Suspect]
     Active Substance: CEFUROXIME
     Indication: ANTIBIOTIC PROPHYLAXIS
     Dosage: 1.5 G, SINGLE
     Route: 042
     Dates: start: 20171120, end: 20171120
  2. PROPOFOL PANPHARMA [Suspect]
     Active Substance: PROPOFOL
     Indication: INDUCTION OF ANAESTHESIA
     Dosage: 200 MG, SINGLE
     Route: 042
  3. DEXAMETHASONE SODIUM SUCCINATE [Suspect]
     Active Substance: DEXAMETHASONE SODIUM SUCCINATE
     Indication: HIP ARTHROPLASTY
     Dosage: 8 MG, SINGLE
     Route: 042
  4. ATRACURIUM BESILATE [Suspect]
     Active Substance: ATRACURIUM BESYLATE
     Indication: INDUCTION OF ANAESTHESIA
     Dosage: 50 MG, SINGLE
     Route: 042
     Dates: start: 20171120, end: 20171120
  5. KETAMINE HCL [Suspect]
     Active Substance: KETAMINE HYDROCHLORIDE
     Indication: INDUCTION OF ANAESTHESIA
     Dosage: 20 MG, SINGLE
     Route: 042
  6. SUFENTANIL CITRATE. [Suspect]
     Active Substance: SUFENTANIL CITRATE
     Dosage: 20 UG, SINGLE (INHAL)
     Route: 042
  7. LIDOCAINE HYDROCHLORIDE. [Suspect]
     Active Substance: LIDOCAINE HYDROCHLORIDE
     Indication: INDUCTION OF ANAESTHESIA
     Dosage: 70 MG, SINGLE
     Route: 042

REACTIONS (1)
  - Anaphylactic shock [Recovered/Resolved]
